FAERS Safety Report 4452964-8 (Version None)
Quarter: 2004Q3

REPORT INFORMATION
  Report Type: 
  Country: None (occurrence: None)
  Receive Date: 20040916
  Receipt Date: 20040831
  Transmission Date: 20050211
  Serious: Yes (Hospitalization)
  Sender: FDA-Public Use
  Company Number: US-SHR-03-010178

PATIENT
  Age: 29 Year
  Sex: Female
  Weight: 79.4 kg

DRUGS (3)
  1. BETASERON [Suspect]
     Indication: MULTIPLE SCLEROSIS
     Dosage: 8 MIU, EVERY 2D, SUBCUTANEOUS
     Route: 058
     Dates: start: 20010307, end: 20030715
  2. CORTICOSTEROIDS () [Suspect]
     Indication: MULTIPLE SCLEROSIS
  3. TYLENOL [Concomitant]

REACTIONS (7)
  - ABASIA [None]
  - ARTHRALGIA [None]
  - BONE EROSION [None]
  - DYSSTASIA [None]
  - MUSCLE SPASMS [None]
  - PAIN [None]
  - TREMOR [None]
